FAERS Safety Report 7261930-9 (Version None)
Quarter: 2011Q1

REPORT INFORMATION
  Report Type: 
  Country: None (occurrence: None)
  Receive Date: 20110130
  Receipt Date: 20101108
  Transmission Date: 20110831
  Serious: No
  Sender: FDA-Public Use
  Company Number: US-ABBOTT-10P-163-0688886-00

PATIENT
  Sex: Female

DRUGS (4)
  1. NAPROXEN [Concomitant]
     Indication: HEADACHE
     Dosage: UNKNOWN STRENGTH
     Route: 048
  2. HUMIRA [Suspect]
     Indication: PSORIATIC ARTHROPATHY
     Route: 058
     Dates: start: 20090901, end: 20100801
  3. NAPROXEN [Concomitant]
     Indication: ARTHRALGIA
  4. HUMIRA [Suspect]
     Route: 058
     Dates: start: 20100901, end: 20100901

REACTIONS (2)
  - NASOPHARYNGITIS [None]
  - VAGINAL HAEMORRHAGE [None]
